FAERS Safety Report 6844926-8 (Version None)
Quarter: 2010Q3

REPORT INFORMATION
  Report Type: 
  Country: None (occurrence: None)
  Receive Date: 20100715
  Receipt Date: 20100709
  Transmission Date: 20110219
  Serious: Yes (Hospitalization)
  Sender: FDA-Public Use
  Company Number: US-CEPHALON-2010003455

PATIENT
  Sex: Male
  Weight: 88 kg

DRUGS (43)
  1. AMRIX [Suspect]
     Indication: FACIAL PAIN
     Route: 048
     Dates: start: 20080101
  2. AMRIX [Suspect]
     Indication: BRUXISM
     Route: 048
     Dates: start: 20080101, end: 20080101
  3. ZANAFLEX [Concomitant]
     Indication: MUSCLE SPASMS
     Dates: start: 20090701
  4. LYRICA [Concomitant]
     Dates: start: 20081210
  5. WELLBUTRIN [Concomitant]
     Dates: start: 20081029
  6. ALLEGRA D 24 HOUR [Concomitant]
     Dates: start: 20000101
  7. AMBIEN CR [Concomitant]
     Dates: start: 20080101
  8. AMBIEN [Concomitant]
     Dates: start: 20000101, end: 20080101
  9. AMITIZA [Concomitant]
     Dates: start: 20080809
  10. MULTIVITAMINS + SUPPLEMENTS [Concomitant]
     Dates: start: 20080101
  11. BUTALBITAL/APAP [Concomitant]
     Dates: start: 19850101
  12. CIALIS [Concomitant]
     Dates: start: 20090323
  13. CYCLOBENZAPRINE [Concomitant]
     Dates: start: 20080709
  14. DIAZEPAM [Concomitant]
     Dates: start: 19990101
  15. FLECTOR PAD [Concomitant]
     Dates: start: 20090501
  16. FLUOXETINE HCL [Concomitant]
     Dates: start: 19880101
  17. ATARAX [Concomitant]
     Dates: start: 20080809
  18. KETOCONOZOLE [Concomitant]
     Dates: start: 20040101
  19. LEVITRA [Concomitant]
     Dates: start: 20090101
  20. LEVOTHYROXINE SODIUM [Concomitant]
     Dates: start: 20030701
  21. LIDOCAINE HCL VISCOUS [Concomitant]
     Dates: start: 20020101
  22. LIDODERM [Concomitant]
     Dates: start: 20080701
  23. LORAZEPAM [Concomitant]
     Dates: start: 20080801
  24. LOVAZA [Concomitant]
     Dates: start: 20081223
  25. LUNESTA [Concomitant]
     Dates: start: 20070801
  26. MEPROBAMATE [Concomitant]
     Dates: start: 20100101
  27. NASONEX [Concomitant]
     Dates: start: 20080501
  28. NEXIUM [Concomitant]
  29. OXCARBAZEPINE [Concomitant]
     Dates: start: 20081230, end: 20090130
  30. OXYCODONE HCL AND ACETAMINOPHEN [Concomitant]
     Dates: start: 20000101
  31. PROTONIX [Concomitant]
     Dates: start: 20060801
  32. POLYETHYLENE GLYCOL [Concomitant]
     Dates: start: 20060801
  33. PROPECIA [Concomitant]
     Dates: start: 20081001, end: 20100101
  34. PROPRANOLOL HYDROCHLORIDE [Concomitant]
     Dates: start: 20030301
  35. ROZEREM [Concomitant]
     Dates: start: 20070801
  36. SINGULAIR [Concomitant]
     Dates: start: 19990101
  37. TAMIFLU [Concomitant]
     Dates: start: 20090101
  38. TAZORAC [Concomitant]
     Dates: start: 20091101
  39. TRAMADOL [Concomitant]
     Dates: start: 20080701
  40. VALTREX [Concomitant]
     Dates: start: 20070701
  41. VOLTAREN [Concomitant]
     Dates: start: 20080701
  42. VYTORIN [Concomitant]
     Dates: start: 20080701
  43. ZOVIRAX [Concomitant]
     Dates: start: 20090101

REACTIONS (2)
  - EPILEPSY [None]
  - MEMORY IMPAIRMENT [None]
